FAERS Safety Report 9648407 (Version 1)
Quarter: 2013Q4

REPORT INFORMATION
  Report Type: Spontaneous
  Country: US (occurrence: None)
  Receive Date: 20131025
  Receipt Date: 20131025
  Transmission Date: 20140711
  Serious: Yes (Hospitalization, Disabling)
  Sender: FDA-Public Use
  Company Number: None

PATIENT
  Age: 34 Year
  Sex: Male
  Weight: 108.86 kg

DRUGS (1)
  1. MEFLOQUINE [Suspect]
     Indication: MALARIA PROPHYLAXIS
     Dosage: 1 TAKEN BY MOUTH
     Dates: start: 20121123, end: 20121207

REACTIONS (5)
  - Delusion [None]
  - Abnormal dreams [None]
  - Abnormal behaviour [None]
  - Legal problem [None]
  - Anxiety [None]
